FAERS Safety Report 9316680 (Version 1)
Quarter: 2013Q2

REPORT INFORMATION
  Report Type: Spontaneous
  Country: JP (occurrence: JP)
  Receive Date: 20130530
  Receipt Date: 20130530
  Transmission Date: 20140414
  Serious: Yes (Other)
  Sender: FDA-Public Use
  Company Number: JP-ASTELLAS-2013JP006214

PATIENT
  Age: 55 Year
  Sex: Female

DRUGS (2)
  1. PROGRAF [Suspect]
     Dosage: 1 MG, UID/QD
     Route: 048
  2. DIGOXIN [Suspect]
     Route: 048

REACTIONS (3)
  - Renal impairment [Unknown]
  - Toxicity to various agents [Unknown]
  - Drug level increased [Unknown]
